FAERS Safety Report 18949000 (Version 2)
Quarter: 2021Q1

REPORT INFORMATION
  Report Type: Report from Study
  Country: US (occurrence: US)
  Receive Date: 20210227
  Receipt Date: 20210317
  Transmission Date: 20210420
  Serious: Yes (Other)
  Sender: FDA-Public Use
  Company Number: US-UCBSA-2021008885

PATIENT

DRUGS (1)
  1. LEVETIRACETAM. [Suspect]
     Active Substance: LEVETIRACETAM
     Indication: EPILEPSY
     Dosage: UNK

REACTIONS (5)
  - Libido decreased [Not Recovered/Not Resolved]
  - Seizure [Unknown]
  - Loss of consciousness [Unknown]
  - Feeling abnormal [Unknown]
  - Affective disorder [Not Recovered/Not Resolved]

NARRATIVE: CASE EVENT DATE: 2020
